FAERS Safety Report 5672716-0 (Version None)
Quarter: 2008Q1

REPORT INFORMATION
  Report Type: 
  Country: None (occurrence: None)
  Receive Date: 20080319
  Receipt Date: 20070709
  Transmission Date: 20080703
  Serious: No
  Sender: FDA-Public Use
  Company Number: US-KINGPHARMUSA00001-K200700871

PATIENT

DRUGS (3)
  1. ALTACE [Suspect]
  2. LOTREL [Suspect]
  3. AVALIDE [Suspect]

REACTIONS (1)
  - ALOPECIA [None]
